FAERS Safety Report 6584615-0 (Version None)
Quarter: 2010Q1

REPORT INFORMATION
  Report Type: 
  Country: None (occurrence: None)
  Receive Date: 20100217
  Receipt Date: 20100216
  Transmission Date: 20100710
  Serious: Yes (Other)
  Sender: FDA-Public Use
  Company Number: US-RB-002717-10

PATIENT
  Age: 70 Year
  Sex: Male

DRUGS (1)
  1. MUCINEX D [Suspect]
     Dosage: TOOK 2 TABLETS
     Route: 048
     Dates: start: 20100211

REACTIONS (3)
  - DYSPHAGIA [None]
  - INSOMNIA [None]
  - PHARYNGEAL OEDEMA [None]
